FAERS Safety Report 6110460-6 (Version None)
Quarter: 2009Q1

REPORT INFORMATION
  Report Type: 
  Country: None (occurrence: None)
  Receive Date: 20090310
  Receipt Date: 20090225
  Transmission Date: 20090719
  Serious: Yes (Hospitalization)
  Sender: FDA-Public Use
  Company Number: DE-B.I. PHARMACEUTICALS,INC./RIDGEFIELD-2009-BP-02757YA

PATIENT
  Age: 68 Year
  Sex: Male

DRUGS (17)
  1. TAMSULOSIN HCL [Suspect]
     Indication: BENIGN PROSTATIC HYPERPLASIA
     Dosage: .4MG
     Route: 048
  2. ACERBON (LISINOPRIL) [Suspect]
     Indication: HYPERTENSION
     Dosage: 20MG
     Route: 048
     Dates: start: 19960101, end: 20081027
  3. AMLODIPINE [Suspect]
     Indication: HYPERTENSION
     Dosage: 5MG
     Route: 048
     Dates: start: 20080601
  4. NEXAVAR [Suspect]
     Indication: RENAL CELL CARCINOMA
     Route: 048
     Dates: start: 20080608, end: 20080809
  5. ZOMETA [Concomitant]
     Indication: METASTASES TO BONE
     Dates: start: 20080618, end: 20080718
  6. ALDACTONE [Concomitant]
     Indication: CARDIAC FAILURE
     Dates: start: 20080601
  7. AMARYL [Concomitant]
     Indication: TYPE 2 DIABETES MELLITUS
     Dates: start: 20080201
  8. ACETYLSALICYLIC ACID SRT [Concomitant]
     Indication: CORONARY ARTERY DISEASE
     Dates: start: 20081101
  9. METOPROLOL SUCCINATE [Concomitant]
     Indication: ARRHYTHMIA
     Dates: start: 20081001
  10. DIGITOXIN INJ [Concomitant]
     Indication: CARDIAC FAILURE
     Dates: start: 20080601
  11. GLUCOBAY [Concomitant]
     Indication: TYPE 2 DIABETES MELLITUS
     Dosage: 150MG
     Dates: start: 19960101
  12. CLOPIDOGREL [Concomitant]
     Indication: STENT PLACEMENT
     Dates: start: 20080301
  13. FLUVASTATIN SODIUM [Concomitant]
     Indication: HYPERLIPIDAEMIA
     Dates: start: 20080601
  14. METHIZOL (THIAMAZOLE) [Concomitant]
     Indication: HYPERTHYROIDISM
     Dates: start: 20080201
  15. PARACETAMOL (PARACETAMOL) [Concomitant]
     Indication: PAIN
     Dates: start: 20080807, end: 20080809
  16. PENTAERYTHIRITOL TETRANITRATE TAB [Concomitant]
     Indication: CORONARY ARTERY DISEASE
     Dates: start: 20080601
  17. TOREM (TORASEMIDE SODIUM) [Concomitant]
     Indication: CARDIAC FAILURE
     Dates: start: 20080601

REACTIONS (1)
  - ANGIOEDEMA [None]
